FAERS Safety Report 5479081-2 (Version None)
Quarter: 2007Q4

REPORT INFORMATION
  Report Type: 
  Country: None (occurrence: None)
  Receive Date: 20071002
  Receipt Date: 20070926
  Transmission Date: 20080405
  Serious: Yes (Death, Hospitalization, Other)
  Sender: FDA-Public Use
  Company Number: 163-21880-07031414

PATIENT
  Age: 59 Year
  Sex: Male

DRUGS (2)
  1. REVLIMID [Suspect]
     Indication: 5Q-SYNDROME
     Dosage: 10 MG, AT BEDTIME, ORAL
     Route: 048
     Dates: start: 20070129, end: 20070321
  2. REVLIMID [Suspect]

REACTIONS (8)
  - ACUTE MYELOID LEUKAEMIA [None]
  - ACUTE RESPIRATORY DISTRESS SYNDROME [None]
  - CEREBROVASCULAR ACCIDENT [None]
  - DISEASE PROGRESSION [None]
  - DRUG INEFFECTIVE [None]
  - ENTEROCOCCAL INFECTION [None]
  - NEUTROPENIA [None]
  - PNEUMOCYSTIS JIROVECI PNEUMONIA [None]
